FAERS Safety Report 7542923-0 (Version None)
Quarter: 2011Q2

REPORT INFORMATION
  Report Type: 
  Country: None (occurrence: None)
  Receive Date: 20110613
  Receipt Date: 20110601
  Transmission Date: 20111010
  Serious: Yes (Hospitalization, Disabling, Other)
  Sender: FDA-Public Use
  Company Number: PHFR2011GB02430

PATIENT
  Sex: Female

DRUGS (5)
  1. CLOZAPINE [Suspect]
     Dosage: 475 MG, UNK
     Route: 048
  2. ARIPIPRAZOLE [Concomitant]
     Dosage: 15 MG/DAY
     Route: 048
  3. CLOZAPINE [Suspect]
     Indication: SCHIZOPHRENIA
     Route: 048
     Dates: start: 20080401
  4. HYOSCINE HYDROBROMIDE [Concomitant]
     Dosage: 300 MG/DAY
     Route: 048
  5. VENLAFAXINE [Concomitant]
     Dosage: 300 MG/DAY
     Route: 048

REACTIONS (4)
  - FATIGUE [None]
  - ELECTROCARDIOGRAM QT PROLONGED [None]
  - LOWER RESPIRATORY TRACT INFECTION [None]
  - UNRESPONSIVE TO STIMULI [None]
